FAERS Safety Report 5516416-6 (Version None)
Quarter: 2007Q4

REPORT INFORMATION
  Report Type: 
  Country: None (occurrence: None)
  Receive Date: 20071114
  Receipt Date: 20070221
  Transmission Date: 20080405
  Serious: No
  Sender: FDA-Public Use
  Company Number: A0639992A

PATIENT
  Sex: Female

DRUGS (1)
  1. COMMIT [Suspect]
     Dosage: 4MG SEE DOSAGE TEXT
     Route: 002

REACTIONS (3)
  - DRUG INEFFECTIVE [None]
  - ORAL DISCOMFORT [None]
  - ORAL PAIN [None]
